FAERS Safety Report 7893924-4 (Version None)
Quarter: 2011Q4

REPORT INFORMATION
  Report Type: 
  Country: None (occurrence: None)
  Receive Date: 20111104
  Receipt Date: 20111028
  Transmission Date: 20120403
  Serious: Yes (Hospitalization, Other)
  Sender: FDA-Public Use
  Company Number: MX-PFIZER INC-2011139998

PATIENT
  Age: 77 Year
  Sex: Male

DRUGS (5)
  1. CINITAPRIDE [Concomitant]
     Dosage: 5 MG, UNK
     Route: 048
     Dates: start: 20110401
  2. ACETAMINOPHEN [Concomitant]
     Dosage: 500 MG, UNK
     Route: 048
     Dates: start: 20110801
  3. DEXTROPROPOXIFEN [Concomitant]
     Dosage: UNK
     Route: 048
     Dates: start: 20110801
  4. OMEPRAZOLE [Concomitant]
     Dosage: 40 MG, UNK
     Route: 048
     Dates: start: 20110401
  5. LINEZOLID [Suspect]
     Indication: INFECTION
     Dosage: 600 MG, 2X/DAY
     Route: 048
     Dates: start: 20110201, end: 20110601

REACTIONS (3)
  - NEUTROPHILIA [None]
  - THROMBOCYTOPENIA [None]
  - ANAEMIA [None]
